FAERS Safety Report 5551197-1 (Version None)
Quarter: 2007Q4

REPORT INFORMATION
  Report Type: 
  Country: None (occurrence: None)
  Receive Date: 20071210
  Receipt Date: 20071130
  Transmission Date: 20080405
  Serious: Yes (Death)
  Sender: FDA-Public Use
  Company Number: 2007SP000877

PATIENT
  Age: 64 Year
  Sex: Male
  Weight: 88 kg

DRUGS (5)
  1. TEMODAL [Suspect]
     Indication: GLIOBLASTOMA MULTIFORME
     Dosage: 75 MG/M2; PO
     Route: 048
     Dates: start: 20061115, end: 20061205
  2. CIPROFLOXACIN [Concomitant]
  3. DEXAMETHASONE TAB [Concomitant]
  4. PHENOBARBITONE [Concomitant]
  5. LANSOPRAZOLE [Concomitant]

REACTIONS (4)
  - COMA [None]
  - FATIGUE [None]
  - GENERAL PHYSICAL HEALTH DETERIORATION [None]
  - URINARY INCONTINENCE [None]
